APPROVED DRUG PRODUCT: HYDROXYCHLOROQUINE SULFATE
Active Ingredient: HYDROXYCHLOROQUINE SULFATE
Strength: 300MG
Dosage Form/Route: TABLET;ORAL
Application: A210441 | Product #003 | TE Code: AB
Applicant: APPCO PHARMA LLC
Approved: Sep 19, 2022 | RLD: No | RS: No | Type: RX